FAERS Safety Report 9163378 (Version 3)
Quarter: 2013Q3

REPORT INFORMATION
  Report Type: Spontaneous
  Country: US (occurrence: US)
  Receive Date: 20130314
  Receipt Date: 20130725
  Transmission Date: 20140515
  Serious: Yes (Hospitalization, Other)
  Sender: FDA-Public Use
  Company Number: US-ROCHE-1200259

PATIENT
  Age: 48 Year
  Sex: Male
  Weight: 102.6 kg

DRUGS (5)
  1. XOLAIR [Suspect]
     Indication: ASTHMA
     Route: 058
     Dates: start: 20090728, end: 20100423
  2. SINGULAIR [Concomitant]
     Indication: ASTHMA
     Route: 048
     Dates: start: 2009
  3. ALBUTEROL INHALER [Concomitant]
     Indication: ASTHMA
     Dosage: MORE THAN 40 YEARS, 2 PUFFS
     Route: 065
  4. NASONEX [Concomitant]
     Indication: RHINITIS ALLERGIC
     Dosage: PRNX YEARS, 25 SPRAYS
     Route: 045
  5. SPIRIVA [Concomitant]
     Indication: ASTHMA
     Dosage: 1 PUFF, INHALATION
     Route: 065
     Dates: start: 20100218, end: 2011

REACTIONS (3)
  - Hepatitis [Recovered/Resolved]
  - Urticaria [Unknown]
  - Dyspnoea [Unknown]
